FAERS Safety Report 9167792 (Version 1)
Quarter: 2013Q1

REPORT INFORMATION
  Report Type: Spontaneous
  Country: US (occurrence: None)
  Receive Date: 20130314
  Receipt Date: 20130314
  Transmission Date: 20140127
  Serious: Yes (Death)
  Sender: FDA-Public Use
  Company Number: AMIT20130004

PATIENT
  Sex: Male

DRUGS (4)
  1. AMITRIPTYLINE HCL [Suspect]
     Indication: PRODUCT USED FOR UNKNOWN INDICATION
  2. OXYCODONE HCL [Suspect]
     Indication: PRODUCT USED FOR UNKNOWN INDICATION
  3. AMPHETAMINE [Suspect]
     Indication: PRODUCT USED FOR UNKNOWN INDICATION
  4. PREGABALIN [Suspect]
     Indication: PRODUCT USED FOR UNKNOWN INDICATION

REACTIONS (2)
  - Intentional overdose [None]
  - Toxicity to various agents [None]
